FAERS Safety Report 4759370-7 (Version None)
Quarter: 2005Q3

REPORT INFORMATION
  Report Type: 
  Country: None (occurrence: None)
  Receive Date: 20050826
  Receipt Date: 20050509
  Transmission Date: 20060218
  Serious: No
  Sender: FDA-Public Use
  Company Number: 212614

PATIENT
  Age: 49 Year
  Sex: Female
  Weight: 104.3 kg

DRUGS (2)
  1. RAPTIVA [Suspect]
     Indication: PSORIASIS
     Dosage: 100 MG, 1/WEEK, SUBCUTANEOUS
     Route: 058
     Dates: start: 20040301
  2. UNSPECIFIED MEDICATIONS (GENERIC COMPONENT(S) NOT KNOWN) [Concomitant]

REACTIONS (2)
  - DIZZINESS [None]
  - TINNITUS [None]
